FAERS Safety Report 8277516-3 (Version None)
Quarter: 2012Q1

REPORT INFORMATION
  Report Type: 
  Country: None (occurrence: None)
  Receive Date: 20120312
  Receipt Date: 20120111
  Transmission Date: 20120608
  Serious: No
  Sender: FDA-Public Use
  Company Number: 2012SP002749

PATIENT
  Age: 31 Year
  Sex: Female

DRUGS (5)
  1. ZONEGRAN [Concomitant]
  2. DDVAP [Concomitant]
  3. METFORMIN HCL [Concomitant]
  4. RISPERDAL [Concomitant]
  5. SAPHRIS [Suspect]
     Indication: BIPOLAR DISORDER
     Dosage: 15 MG ;QD;

REACTIONS (2)
  - DIZZINESS [None]
  - HEART RATE INCREASED [None]
